FAERS Safety Report 6567843-X (Version None)
Quarter: 2010Q1

REPORT INFORMATION
  Report Type: 
  Country: None (occurrence: None)
  Receive Date: 20100203
  Receipt Date: 20100126
  Transmission Date: 20100710
  Serious: Yes (Other)
  Sender: FDA-Public Use
  Company Number: US-JNJFOC-20100110641

PATIENT
  Sex: Male

DRUGS (1)
  1. LEVAQUIN [Suspect]
     Indication: URINARY TRACT INFECTION
     Route: 065
     Dates: start: 20090801, end: 20090815

REACTIONS (4)
  - GAIT DISTURBANCE [None]
  - LIGAMENT RUPTURE [None]
  - SKELETAL INJURY [None]
  - TENDON RUPTURE [None]
